FAERS Safety Report 15589567 (Version 3)
Quarter: 2018Q4

REPORT INFORMATION
  Report Type: Spontaneous
  Country: SE (occurrence: SE)
  Receive Date: 20181106
  Receipt Date: 20181218
  Transmission Date: 20190205
  Serious: Yes (Death)
  Sender: FDA-Public Use
  Company Number: SE-ACCORD-091448

PATIENT
  Age: 57 Year
  Sex: Male

DRUGS (7)
  1. FURIX [Concomitant]
     Active Substance: FUROSEMIDE
     Dosage: 1
     Dates: start: 20170706
  2. ENALAPRIL [Suspect]
     Active Substance: ENALAPRIL
     Indication: PRODUCT USED FOR UNKNOWN INDICATION
     Route: 048
     Dates: start: 20080130, end: 201709
  3. ISOPTIN [Suspect]
     Active Substance: VERAPAMIL HYDROCHLORIDE
     Indication: PRODUCT USED FOR UNKNOWN INDICATION
     Dosage: PROLONGED-RELEASE TABLET
     Route: 048
     Dates: start: 20090622, end: 201709
  4. SPIRONOLACTONE. [Suspect]
     Active Substance: SPIRONOLACTONE
     Indication: PRODUCT USED FOR UNKNOWN INDICATION
     Route: 048
     Dates: start: 20170613, end: 201709
  5. WARFARIN [Concomitant]
     Active Substance: WARFARIN
  6. DIGOXIN. [Suspect]
     Active Substance: DIGOXIN
     Indication: CARDIAC FAILURE
     Route: 048
     Dates: start: 20111202, end: 201709
  7. SERETIDE DISKUS FORTE [Concomitant]

REACTIONS (4)
  - Loss of consciousness [Fatal]
  - Toxicity to various agents [Fatal]
  - Seizure [Fatal]
  - Cardiac arrest [Fatal]

NARRATIVE: CASE EVENT DATE: 201709
